FAERS Safety Report 8058279-3 (Version None)
Quarter: 2012Q1

REPORT INFORMATION
  Report Type: 
  Country: None (occurrence: None)
  Receive Date: 20120120
  Receipt Date: 20120117
  Transmission Date: 20120608
  Serious: Yes (Other)
  Sender: FDA-Public Use
  Company Number: US-PFIZER INC-2011135399

PATIENT
  Sex: Male

DRUGS (2)
  1. PROAIR HFA [Concomitant]
     Indication: ASTHMA
     Dosage: UNK
     Dates: start: 20000101
  2. CHANTIX [Suspect]
     Indication: SMOKING CESSATION THERAPY
     Dosage: UNK
     Dates: start: 20080201, end: 20080601

REACTIONS (4)
  - AGGRESSION [None]
  - SUICIDAL BEHAVIOUR [None]
  - DEPRESSION [None]
  - ANXIETY [None]
